FAERS Safety Report 11574585 (Version 1)
Quarter: 2015Q3

REPORT INFORMATION
  Report Type: Spontaneous
  Country: US (occurrence: None)
  Receive Date: 20150929
  Receipt Date: 20150929
  Transmission Date: 20151125
  Serious: Yes (Life-Threatening, Hospitalization, Disabling)
  Sender: FDA-Public Use
  Company Number: None

PATIENT
  Age: 24 Year
  Sex: Male
  Weight: 75.93 kg

DRUGS (10)
  1. KETOCONAZOLE 2% [Suspect]
     Active Substance: KETOCONAZOLE
     Indication: DYSPNOEA
     Dosage: CREAM ??APPLY TOPICALLY TO AFFECTED AREA (S)
     Dates: start: 20130903, end: 20150924
  2. KETOCONAZOLE 2% [Suspect]
     Active Substance: KETOCONAZOLE
     Indication: WHEEZING
     Dosage: CREAM ??APPLY TOPICALLY TO AFFECTED AREA (S)
     Dates: start: 20130903, end: 20150924
  3. KETOCONAZOLE 2% CREAM [Concomitant]
  4. KETOCONAZOLE 2% [Suspect]
     Active Substance: KETOCONAZOLE
     Indication: PHARYNGEAL OEDEMA
     Dosage: CREAM ??APPLY TOPICALLY TO AFFECTED AREA (S)
     Dates: start: 20130903, end: 20150924
  5. KETOCONAZOLE 2% [Suspect]
     Active Substance: KETOCONAZOLE
     Indication: SWOLLEN TONGUE
     Dosage: CREAM ??APPLY TOPICALLY TO AFFECTED AREA (S)
     Dates: start: 20130903, end: 20150924
  6. KETOCONAZOLE 2% [Suspect]
     Active Substance: KETOCONAZOLE
     Indication: RASH
     Dosage: CREAM ??APPLY TOPICALLY TO AFFECTED AREA (S)
     Dates: start: 20130903, end: 20150924
  7. KETOCONAZOLE 2% [Suspect]
     Active Substance: KETOCONAZOLE
     Indication: COUGH
     Dosage: CREAM ??APPLY TOPICALLY TO AFFECTED AREA (S)
     Dates: start: 20130903, end: 20150924
  8. KETOCONAZOLE 2% [Suspect]
     Active Substance: KETOCONAZOLE
     Indication: URTICARIA
     Dosage: CREAM ??APPLY TOPICALLY TO AFFECTED AREA (S)
     Dates: start: 20130903, end: 20150924
  9. KETOCONAZOLE 2% [Suspect]
     Active Substance: KETOCONAZOLE
     Indication: PRURITUS
     Dosage: CREAM ??APPLY TOPICALLY TO AFFECTED AREA (S)
     Dates: start: 20130903, end: 20150924
  10. KETOCONAZOLE 2% [Suspect]
     Active Substance: KETOCONAZOLE
     Indication: SWELLING FACE
     Dosage: CREAM ??APPLY TOPICALLY TO AFFECTED AREA (S)
     Dates: start: 20130903, end: 20150924

REACTIONS (1)
  - Fungal skin infection [None]

NARRATIVE: CASE EVENT DATE: 20130903
